FAERS Safety Report 10006259 (Version 1)
Quarter: 2014Q1

REPORT INFORMATION
  Report Type: Report from Study
  Country: CA (occurrence: CA)
  Receive Date: 20140313
  Receipt Date: 20140313
  Transmission Date: 20141002
  Serious: Yes (Hospitalization)
  Sender: FDA-Public Use
  Company Number: CA-ABBVIE-14P-028-1210182-00

PATIENT
  Sex: Female
  Weight: 63.5 kg

DRUGS (1)
  1. HUMIRA [Suspect]
     Indication: RHEUMATOID ARTHRITIS
     Route: 058
     Dates: start: 20091217

REACTIONS (3)
  - Chest pain [Unknown]
  - Drug dose omission [Unknown]
  - Dyspnoea [Unknown]
